FAERS Safety Report 8220999-5 (Version None)
Quarter: 2012Q1

REPORT INFORMATION
  Report Type: 
  Country: None (occurrence: None)
  Receive Date: 20120320
  Receipt Date: 20120309
  Transmission Date: 20120608
  Serious: Yes (Other)
  Sender: FDA-Public Use
  Company Number: DE-GENZYME-CLOF-1001993

PATIENT
  Age: 58 Year
  Sex: Male
  Weight: 82.7 kg

DRUGS (6)
  1. CYTARABINE [Suspect]
     Indication: ACUTE MYELOID LEUKAEMIA
     Dosage: 2100 MG, QD
     Route: 042
     Dates: start: 20111111, end: 20111115
  2. EVOLTRA [Suspect]
     Indication: ACUTE MYELOID LEUKAEMIA
     Dosage: 84 MG, QD
     Route: 042
     Dates: start: 20111111, end: 20111115
  3. ALLOPURINOL [Concomitant]
     Indication: NEPHROPATHY
  4. GRANISETRON HYDROCHLORIDE [Concomitant]
     Indication: ANTIEMETIC SUPPORTIVE CARE
     Dosage: 3 MG, QD
     Route: 042
     Dates: start: 20111111, end: 20111115
  5. ALLOPURINOL [Concomitant]
     Indication: BLOOD URIC ACID
     Dosage: 100 MG, QD
     Route: 048
     Dates: start: 20111111, end: 20111117
  6. HYDROCORTISONE [Concomitant]
     Indication: PRODUCT USED FOR UNKNOWN INDICATION
     Dosage: 100 MG, QD
     Route: 042
     Dates: start: 20111111, end: 20111115

REACTIONS (2)
  - RENAL FAILURE ACUTE [None]
  - CARDIAC FAILURE [None]
